FAERS Safety Report 10049407 (Version 2)
Quarter: 2016Q1

REPORT INFORMATION
  Report Type: Spontaneous
  Country: SE (occurrence: SE)
  Receive Date: 20140401
  Receipt Date: 20160224
  Transmission Date: 20160525
  Serious: Yes (Hospitalization)
  Sender: FDA-Public Use
  Company Number: SE-JNJFOC-20140317850

PATIENT
  Age: 36 Year
  Sex: Male

DRUGS (2)
  1. SIMPONI [Suspect]
     Active Substance: GOLIMUMAB
     Indication: PSORIATIC ARTHROPATHY
     Route: 058
     Dates: start: 201110
  2. SIMPONI [Suspect]
     Active Substance: GOLIMUMAB
     Indication: PSORIATIC ARTHROPATHY
     Route: 058
     Dates: start: 20140109

REACTIONS (2)
  - Neutrophilic dermatosis [Not Recovered/Not Resolved]
  - Glomerulonephritis [Not Recovered/Not Resolved]

NARRATIVE: CASE EVENT DATE: 20130822
